FAERS Safety Report 9801499 (Version 3)
Quarter: 2015Q3

REPORT INFORMATION
  Report Type: Spontaneous
  Country: US (occurrence: US)
  Receive Date: 20140107
  Receipt Date: 20150730
  Transmission Date: 20151125
  Serious: No
  Sender: FDA-Public Use
  Company Number: US-GILEAD-US-CVT-100463

PATIENT
  Sex: Male

DRUGS (10)
  1. FUROSEMIDE                         /00032601/ [Concomitant]
  2. RANEXA [Suspect]
     Active Substance: RANOLAZINE
  3. COUMADIN [Concomitant]
     Active Substance: WARFARIN SODIUM
  4. COREG CR [Concomitant]
     Active Substance: CARVEDILOL PHOSPHATE
  5. SIMVASTATIN. [Concomitant]
     Active Substance: SIMVASTATIN
  6. AZOR [Concomitant]
     Active Substance: AMLODIPINE BESYLATE\OLMESARTAN MEDOXOMIL
  7. BEANO [Concomitant]
     Active Substance: ASPERGILLUS NIGER .ALPHA.-GALACTOSIDASE
  8. GAS-X [Concomitant]
     Active Substance: DIMETHICONE
  9. RANEXA [Suspect]
     Active Substance: RANOLAZINE
     Indication: ANGINA PECTORIS
     Route: 048
  10. ASA [Concomitant]
     Active Substance: ASPIRIN

REACTIONS (3)
  - International normalised ratio increased [Unknown]
  - Inappropriate schedule of drug administration [Unknown]
  - Drug ineffective [Unknown]
